FAERS Safety Report 22132117 (Version 1)
Quarter: 2023Q1

REPORT INFORMATION
  Report Type: Report from Study
  Country: IT (occurrence: IT)
  Receive Date: 20230323
  Receipt Date: 20230323
  Transmission Date: 20230418
  Serious: Yes (Other)
  Sender: FDA-Public Use
  Company Number: None

PATIENT
  Age: 68 Year
  Sex: Female

DRUGS (2)
  1. TRIAZOLAM [Suspect]
     Active Substance: TRIAZOLAM
     Indication: Product used for unknown indication
     Dosage: 10 DOSAGE FORM, 10 UNK, 10UNIT OF MEASURE:
     Route: 048
     Dates: start: 20220820, end: 20220820
  2. XANAX [Concomitant]
     Active Substance: ALPRAZOLAM
     Indication: Sleep disorder therapy
     Dosage: 8 UNIT OF MEASURE: DROPS
     Route: 048

REACTIONS (2)
  - Intentional self-injury [Recovered/Resolved]
  - Toxicity to various agents [Recovering/Resolving]

NARRATIVE: CASE EVENT DATE: 20220820
